FAERS Safety Report 4543594-8 (Version None)
Quarter: 2005Q1

REPORT INFORMATION
  Report Type: 
  Country: None (occurrence: None)
  Receive Date: 20050103
  Receipt Date: 20041029
  Transmission Date: 20050727
  Serious: Yes (Other)
  Sender: FDA-Public Use
  Company Number: NL-GLAXOSMITHKLINE-B0350593A

PATIENT
  Age: 8 Year
  Sex: Male

DRUGS (4)
  1. FLIXOTIDE [Suspect]
     Indication: ASTHMA
     Dates: start: 20000101, end: 20041124
  2. SERETIDE [Concomitant]
     Dates: start: 20041124
  3. VENTOLIN [Concomitant]
     Dosage: 100MCG UNKNOWN
     Route: 055
     Dates: start: 19980101
  4. ATROVENT [Concomitant]
     Dosage: 20MCG UNKNOWN
     Route: 055
     Dates: start: 20020217

REACTIONS (5)
  - ACCIDENTAL OVERDOSE [None]
  - FALL [None]
  - MEDICATION ERROR [None]
  - MOTOR DYSFUNCTION [None]
  - PAIN IN EXTREMITY [None]
